FAERS Safety Report 9683646 (Version 2)
Quarter: 2013Q4

REPORT INFORMATION
  Report Type: Spontaneous
  Country: US (occurrence: US)
  Receive Date: 20131112
  Receipt Date: 20131223
  Transmission Date: 20140711
  Serious: Yes (Other)
  Sender: FDA-Public Use
  Company Number: US-PFIZER INC-2013318005

PATIENT
  Age: 62 Year
  Sex: Male

DRUGS (15)
  1. METFORMIN HCL [Suspect]
     Indication: TYPE 2 DIABETES MELLITUS
     Dosage: 1000 MG, 2X/DAY
  2. GLYNASE [Suspect]
     Indication: TYPE 2 DIABETES MELLITUS
     Dosage: 3 MG, 2X/DAY
  3. VICTOZA [Suspect]
     Indication: TYPE 2 DIABETES MELLITUS
     Dosage: 1.8 MG, UNK
  4. LEVEMIR [Suspect]
     Indication: TYPE 2 DIABETES MELLITUS
     Dosage: 80 IU, ONCE DAILY
     Route: 058
  5. GLYBURIDE [Concomitant]
     Dosage: 3 MG, BID
  6. IMMUNOGLOBULINS [Concomitant]
     Dosage: 15 G, Q 21 DAYS
     Route: 042
  7. LISINOPRIL [Concomitant]
     Dosage: 40 MG, ONE DAILY
  8. ACETYLSALICYLIC ACID [Concomitant]
     Dosage: 325 MG, DAILY
  9. ALPHAGAN [Concomitant]
     Dosage: 1 GTT, BID
     Route: 047
  10. NORVASC [Concomitant]
     Dosage: 5 MG, DAILY
  11. LIPITOR [Concomitant]
     Dosage: 40 MG, BEDTIME
  12. METOPROLOL TARTRATE [Concomitant]
     Dosage: 25 MG, BID
     Route: 048
  13. NITROSTAT [Concomitant]
     Indication: CHEST PAIN
     Dosage: 0.4 MG, AS NEEDED
     Route: 060
  14. HYDROCODONE W/ACETAMINOPHEN [Concomitant]
     Dosage: HYDROCODONE 10MG- ACETAMINOPHEN 325 MG, AS NEEDED
  15. FLOMAX [Concomitant]
     Dosage: 0.4 MG, BED TIME

REACTIONS (3)
  - Medication error [Recovered/Resolved]
  - Diabetes mellitus inadequate control [Recovering/Resolving]
  - Treatment noncompliance [Unknown]
